FAERS Safety Report 9351546 (Version 1)
Quarter: 2013Q2

REPORT INFORMATION
  Report Type: Spontaneous
  Country: JP (occurrence: JP)
  Receive Date: 20130617
  Receipt Date: 20130617
  Transmission Date: 20140414
  Serious: Yes (Hospitalization)
  Sender: FDA-Public Use
  Company Number: PHHY2013JP061037

PATIENT
  Sex: Male

DRUGS (2)
  1. CLOZARIL [Suspect]
     Indication: SCHIZOPHRENIA
     Dosage: UNK
     Route: 048
     Dates: start: 20130403
  2. HORMONES [Concomitant]
     Indication: HYPOTHALAMO-PITUITARY DISORDER
     Dosage: UNK

REACTIONS (6)
  - Hyperthermia [Unknown]
  - Loss of consciousness [Unknown]
  - Abasia [Unknown]
  - Fluid intake reduced [Unknown]
  - Speech disorder [Unknown]
  - Dyskinesia [Unknown]
